FAERS Safety Report 7801807-0 (Version None)
Quarter: 2011Q4

REPORT INFORMATION
  Report Type: 
  Country: None (occurrence: None)
  Receive Date: 20111007
  Receipt Date: 20111004
  Transmission Date: 20120403
  Serious: Yes (Hospitalization, Other)
  Sender: FDA-Public Use
  Company Number: FR-PFIZER INC-2011235951

PATIENT
  Sex: Female

DRUGS (1)
  1. ARTHROTEC [Suspect]
     Dosage: 75 UNK, UNK

REACTIONS (4)
  - EPILEPSY [None]
  - HEPATIC FAILURE [None]
  - ANAPHYLACTIC SHOCK [None]
  - RENAL FAILURE [None]
